FAERS Safety Report 7247993-5 (Version None)
Quarter: 2011Q1

REPORT INFORMATION
  Report Type: 
  Country: None (occurrence: None)
  Receive Date: 20110127
  Receipt Date: 20110124
  Transmission Date: 20110831
  Serious: Yes (Hospitalization)
  Sender: FDA-Public Use
  Company Number: SE-PFIZER INC-2011016078

PATIENT
  Age: 76 Year
  Sex: Male

DRUGS (5)
  1. METOPROLOL [Suspect]
     Indication: CARDIAC DISORDER
     Dosage: UNK
     Route: 048
  2. FURIX [Suspect]
     Indication: CARDIAC DISORDER
     Dosage: UNK
     Route: 048
     Dates: end: 20101107
  3. MORFIN [Suspect]
     Dosage: UNK
     Dates: end: 20101105
  4. CELEBRA [Suspect]
     Dosage: UNK
     Route: 048
     Dates: start: 20100401, end: 20101105
  5. COZAAR [Suspect]
     Indication: CARDIAC DISORDER
     Dosage: UNK
     Route: 048
     Dates: end: 20101104

REACTIONS (3)
  - RENAL FAILURE ACUTE [None]
  - HYPOTENSION [None]
  - FATIGUE [None]
